FAERS Safety Report 6283955-2 (Version None)
Quarter: 2009Q3

REPORT INFORMATION
  Report Type: 
  Country: None (occurrence: None)
  Receive Date: 20090723
  Receipt Date: 20090723
  Transmission Date: 20100115
  Serious: Yes (Other)
  Sender: FDA-Public Use
  Company Number: None

PATIENT
  Age: 61 Year
  Sex: Male
  Weight: 70.3075 kg

DRUGS (1)
  1. JANUMET [Suspect]
     Indication: DIABETES MELLITUS
     Dosage: 50 MG/500 MG BID PO
     Route: 048
     Dates: start: 20090420

REACTIONS (2)
  - ANGINA PECTORIS [None]
  - LACTIC ACIDOSIS [None]
